FAERS Safety Report 9266165 (Version 4)
Quarter: 2013Q3

REPORT INFORMATION
  Report Type: Report from Study
  Country: GB (occurrence: GB)
  Receive Date: 20130502
  Receipt Date: 20130827
  Transmission Date: 20140515
  Serious: Yes (Death, Life-Threatening, Disabling, Other)
  Sender: FDA-Public Use
  Company Number: GB-ROCHE-1218733

PATIENT
  Age: 81 Year
  Sex: Male

DRUGS (7)
  1. RANIBIZUMAB [Suspect]
     Indication: AGE-RELATED MACULAR DEGENERATION
     Route: 050
     Dates: start: 20120920
  2. RANIBIZUMAB [Suspect]
     Route: 050
     Dates: start: 20130328, end: 20130328
  3. SIMVASTATIN [Concomitant]
  4. ASPIRIN [Concomitant]
  5. LOSARTAN [Concomitant]
  6. AIROMIR [Concomitant]
     Indication: ASTHMA
     Route: 065
  7. CLENIL MODULITE [Concomitant]
     Indication: ASTHMA

REACTIONS (13)
  - Lung neoplasm malignant [Fatal]
  - Bronchial carcinoma [Fatal]
  - Prostate cancer [Not Recovered/Not Resolved]
  - Hydronephrosis [Unknown]
  - Metastases to liver [Unknown]
  - Metastases to adrenals [Unknown]
  - Metastases to bone [Unknown]
  - Blood urea increased [Unknown]
  - Alanine aminotransferase increased [Unknown]
  - Blood alkaline phosphatase increased [Unknown]
  - C-reactive protein increased [Unknown]
  - White blood cell count increased [Unknown]
  - Platelet count decreased [Unknown]
